FAERS Safety Report 8405184 (Version 6)
Quarter: 2012Q4

REPORT INFORMATION
  Report Type: 
  Country: US (occurrence: US)
  Receive Date: 20120214
  Receipt Date: 20121012
  Transmission Date: 20130627
  Serious: No
  Sender: FDA-Public Use
  Company Number: US-B.I. PHARMACEUTICALS,INC./RIDGEFIELD-2012-BP-02290BP

PATIENT
  Age: 73 None
  Sex: Male

DRUGS (17)
  1. PRADAXA [Suspect]
     Indication: ATRIAL FIBRILLATION
     Dosage: 300 mg
     Route: 048
     Dates: start: 2011, end: 201207
  2. PRADAXA [Suspect]
     Dosage: 150 mg
     Route: 048
     Dates: start: 201207
  3. PRADAXA [Suspect]
     Dosage: 75 mg
     Route: 048
     Dates: start: 201208
  4. RANITIDINE [Concomitant]
     Indication: GASTRIC ULCER
     Dosage: 300 mg
     Route: 048
  5. FUROSEMIDE [Concomitant]
     Indication: OVERWEIGHT
     Dosage: 80 mg
     Route: 048
  6. DIABETIC PILL [Concomitant]
     Indication: DIABETES MELLITUS
  7. PRAVASTATIN [Concomitant]
     Indication: BLOOD CHOLESTEROL INCREASED
     Dates: start: 201203
  8. ALLOPURINOL [Concomitant]
     Indication: GOUT
     Dosage: 300 mg
     Route: 048
  9. ULCER PILL [Concomitant]
     Indication: ULCER
  10. POTASSIUM [Concomitant]
     Dosage: 30 mEq
     Route: 048
  11. DIGOXIN [Concomitant]
     Dosage: 0.25 mg
     Route: 048
  12. GARLIC PILLS [Concomitant]
     Route: 048
  13. ENALAPRIL [Concomitant]
     Indication: HYPERTENSION
     Dosage: 20 mg
     Route: 048
  14. GLYBURIDE [Concomitant]
     Indication: DIABETES MELLITUS
     Dosage: 1.25 mg
     Route: 048
  15. ALPRAZOLAM [Concomitant]
     Dosage: 0.75 mg
     Route: 048
  16. JOINT PILL [Concomitant]
     Indication: ARTHRITIS
     Route: 048
  17. EQUATE STOOL SOFTENER [Concomitant]
     Indication: FAECES HARD
     Route: 048

REACTIONS (14)
  - Burning sensation [Not Recovered/Not Resolved]
  - Haematochezia [Unknown]
  - Contusion [Recovered/Resolved]
  - Haemorrhage [Recovered/Resolved]
  - Contusion [Not Recovered/Not Resolved]
  - Cellulitis [Recovered/Resolved]
  - Contusion [Not Recovered/Not Resolved]
  - Cellulitis [Recovered/Resolved]
  - Haemorrhage [Recovered/Resolved]
  - Contusion [Recovered/Resolved]
  - Cellulitis [Not Recovered/Not Resolved]
  - Contusion [Not Recovered/Not Resolved]
  - Diarrhoea [Not Recovered/Not Resolved]
  - Retinal tear [Recovered/Resolved]
